FAERS Safety Report 25820666 (Version 1)
Quarter: 2025Q3

REPORT INFORMATION
  Report Type: Spontaneous
  Country: EU (occurrence: EU)
  Receive Date: 20250919
  Receipt Date: 20250919
  Transmission Date: 20251021
  Serious: Yes (Other)
  Sender: CELLTRION
  Company Number: EU-PFIZER INC-PV202400027400

PATIENT

DRUGS (4)
  1. ADALIMUMAB [Suspect]
     Active Substance: ADALIMUMAB
     Indication: Colitis ulcerative
     Dosage: INCREASING HER DOSE TO 80MG WEEKLY
  2. ADALIMUMAB [Suspect]
     Active Substance: ADALIMUMAB
  3. INFLIXIMAB [Suspect]
     Active Substance: INFLIXIMAB
     Indication: Colitis ulcerative
  4. AZATHIOPRINE [Suspect]
     Active Substance: AZATHIOPRINE
     Indication: Colitis ulcerative

REACTIONS (5)
  - Drug ineffective [Unknown]
  - Fatigue [Unknown]
  - Nausea [Unknown]
  - Drug ineffective [Unknown]
  - Intentional product use issue [Unknown]
